FAERS Safety Report 9813657 (Version 1)
Quarter: 2014Q1

REPORT INFORMATION
  Report Type: Spontaneous
  Country: US (occurrence: None)
  Receive Date: 20140109
  Receipt Date: 20140109
  Transmission Date: 20141002
  Serious: Yes (Hospitalization)
  Sender: FDA-Public Use
  Company Number: None

PATIENT
  Age: 82 Year
  Sex: Female

DRUGS (20)
  1. NITROFURANTOIN [Suspect]
     Indication: URINARY TRACT INFECTION
     Dosage: 1 CAPSULE
     Route: 048
  2. ACETAMINOPHEN (TYLENOL) [Concomitant]
  3. AMB HOME OXYGEN [Concomitant]
  4. APIDRA SOLOSTAR [Concomitant]
  5. B COMPLEX [Concomitant]
  6. CALCIUM CARBOANTE (CALTRATE) [Concomitant]
  7. CARVEDILOL (COREG) [Concomitant]
  8. CHOLECALCIFEROL (VITAMIN D) [Concomitant]
  9. CYANOCOBALAMIN, VITAMIN B-12 [Concomitant]
  10. COLACE [Concomitant]
  11. ESCITALOPRAM (NEXIUM) [Concomitant]
  12. NEXIUM [Concomitant]
  13. ESTRADIOL (ESTRACE) [Concomitant]
  14. FUROSEMIDE (LASIX) [Concomitant]
  15. GABAPENTIN (NEURONTIN) [Concomitant]
  16. INSULIN GLARGINE (LANTUS SOLOSTAR) [Concomitant]
  17. LEVOTHYROXINE (SYNTROID) [Concomitant]
  18. LORATADINE (CLARITIN, ALAVERT) [Concomitant]
  19. LORAZEPAM (ATIVAN) [Concomitant]
  20. ERTAPENAM [Concomitant]

REACTIONS (5)
  - Musculoskeletal chest pain [None]
  - Hyperhidrosis [None]
  - Hypoxia [None]
  - Musculoskeletal chest pain [None]
  - Lung infiltration [None]
